FAERS Safety Report 16191736 (Version 1)
Quarter: 2019Q2

REPORT INFORMATION
  Report Type: Spontaneous
  Country: DE (occurrence: DE)
  Receive Date: 20190412
  Receipt Date: 20190412
  Transmission Date: 20190711
  Serious: Yes (Other)
  Sender: FDA-Public Use
  Company Number: PHHY2019DE079495

PATIENT
  Age: 1 Day
  Sex: Female

DRUGS (3)
  1. BISOPROLOL [Suspect]
     Active Substance: BISOPROLOL
     Indication: FOETAL EXPOSURE DURING PREGNANCY
     Dosage: MATERNAL DOSE:2.5 MG, DAILY
     Route: 064
     Dates: start: 20180224, end: 20181201
  2. BUDECORT [Concomitant]
     Active Substance: BUDESONIDE
     Indication: FOETAL EXPOSURE DURING PREGNANCY
     Dosage: MATERNAL DOSE; 400 UG, QD
     Route: 064
     Dates: start: 20180224, end: 20180317
  3. FLUOXETIN [Concomitant]
     Active Substance: FLUOXETINE HYDROCHLORIDE
     Indication: FOETAL EXPOSURE DURING PREGNANCY
     Dosage: MATERNAL DOSE; 20 MG, QD  (20 [MG/D ])
     Route: 064
     Dates: start: 20180224, end: 20180319

REACTIONS (6)
  - Hypoglycaemia neonatal [Recovered/Resolved]
  - Selective eating disorder [Recovered/Resolved]
  - Small for dates baby [Recovered/Resolved]
  - Infantile apnoea [Recovered/Resolved]
  - Foetal exposure during pregnancy [Unknown]
  - Bradycardia neonatal [Recovered/Resolved]

NARRATIVE: CASE EVENT DATE: 20181201
